FAERS Safety Report 11495398 (Version 1)
Quarter: 2015Q3

REPORT INFORMATION
  Report Type: Spontaneous
  Country: US (occurrence: None)
  Receive Date: 20150910
  Receipt Date: 20150910
  Transmission Date: 20151125
  Serious: No
  Sender: FDA-Public Use
  Company Number: None

PATIENT
  Age: 64 Year
  Sex: Female
  Weight: 88.45 kg

DRUGS (20)
  1. TOVIAZ [Concomitant]
     Active Substance: FESOTERODINE FUMARATE
  2. VITAMIN B12 [Concomitant]
     Active Substance: CYANOCOBALAMIN
  3. VITAMIN D [Concomitant]
     Active Substance: CHOLECALCIFEROL
  4. DIOGOXIN [Concomitant]
  5. NITROSTAT [Concomitant]
     Active Substance: NITROGLYCERIN
  6. ALEVE [Concomitant]
     Active Substance: NAPROXEN SODIUM
  7. RESTASIS [Suspect]
     Active Substance: CYCLOSPORINE
     Indication: DRY EYE
     Dosage: 1 DROP PER EYE
     Route: 047
     Dates: start: 20150711, end: 20150712
  8. SYNTHROID [Concomitant]
     Active Substance: LEVOTHYROXINE SODIUM
  9. PROTONIX [Concomitant]
     Active Substance: PANTOPRAZOLE SODIUM
  10. XANAX [Concomitant]
     Active Substance: ALPRAZOLAM
  11. XARELTO [Concomitant]
     Active Substance: RIVAROXABAN
  12. LASIK [Concomitant]
     Active Substance: FUROSEMIDE\POTASSIUM CHLORIDE
  13. PRAVASTATIN [Concomitant]
     Active Substance: PRAVASTATIN\PRAVASTATIN SODIUM
  14. MIRAPEX [Concomitant]
     Active Substance: PRAMIPEXOLE DIHYDROCHLORIDE
  15. ALDACTONE [Concomitant]
     Active Substance: SPIRONOLACTONE
  16. ATTARAX [Concomitant]
  17. ZALEPLON (SONATA) [Concomitant]
  18. FLEXERAL [Concomitant]
  19. FLECAINIDE [Concomitant]
     Active Substance: FLECAINIDE
  20. LEVERMIR [Concomitant]

REACTIONS (1)
  - Eye pain [None]

NARRATIVE: CASE EVENT DATE: 20150711
